FAERS Safety Report 15965065 (Version 1)
Quarter: 2019Q1

REPORT INFORMATION
  Report Type: Spontaneous
  Country: GB (occurrence: GB)
  Receive Date: 20190215
  Receipt Date: 20190215
  Transmission Date: 20190418
  Serious: Yes (Other)
  Sender: FDA-Public Use
  Company Number: GB-AUROBINDO-AUR-APL-2018-003391

PATIENT

DRUGS (1)
  1. AMOXICILLIN. [Suspect]
     Active Substance: AMOXICILLIN
     Indication: LOWER RESPIRATORY TRACT INFECTION
     Dosage: UNK
     Route: 065

REACTIONS (10)
  - Drug eruption [Unknown]
  - Rash maculo-papular [Unknown]
  - Lethargy [Unknown]
  - Rash [Unknown]
  - Headache [Unknown]
  - Neurosyphilis [Unknown]
  - Vision blurred [Unknown]
  - Malaise [Unknown]
  - Hyperhidrosis [Unknown]
  - Papilloedema [Unknown]
